FAERS Safety Report 7570056-6 (Version None)
Quarter: 2011Q2

REPORT INFORMATION
  Report Type: 
  Country: None (occurrence: None)
  Receive Date: 20110624
  Receipt Date: 20110606
  Transmission Date: 20111010
  Serious: No
  Sender: FDA-Public Use
  Company Number: US-B.I. PHARMACEUTICALS,INC./RIDGEFIELD-2011-BP-14710BP

PATIENT
  Age: 85 Year
  Sex: Male

DRUGS (15)
  1. LASIX [Concomitant]
     Indication: HYPERTENSION
  2. LASIX [Concomitant]
     Indication: SWELLING
  3. HUMALOG [Concomitant]
     Indication: DIABETES MELLITUS
  4. CELEBREX [Concomitant]
     Indication: ARTHRITIS
  5. COQ10 [Concomitant]
     Indication: SUPPLEMENTATION THERAPY
  6. SYNTHROID [Concomitant]
     Dosage: 25 MG
  7. CALCIUM / VIT D [Concomitant]
     Indication: SUPPLEMENTATION THERAPY
  8. ENALAPRIL MALEATE [Concomitant]
     Indication: HYPERTENSION
     Dosage: 5 MG
  9. GLUCOPHAGE [Concomitant]
     Indication: DIABETES MELLITUS
     Dosage: 500 MG
  10. VITAMIN B COMPLEX CAP [Concomitant]
     Indication: SUPPLEMENTATION THERAPY
  11. PRADAXA [Suspect]
     Indication: ATRIAL FIBRILLATION
     Dosage: 300 MG
     Route: 048
     Dates: start: 20110201
  12. LANTUS [Concomitant]
     Indication: DIABETES MELLITUS
  13. ASPIRIN [Concomitant]
     Indication: ATRIAL FIBRILLATION
  14. COREG [Concomitant]
     Indication: HYPERTENSION
  15. ZOCOR [Concomitant]
     Indication: BLOOD CHOLESTEROL INCREASED
     Dosage: 80 MG

REACTIONS (1)
  - NASAL ODOUR [None]
